FAERS Safety Report 8761356 (Version 2)
Quarter: 2012Q4

REPORT INFORMATION
  Report Type: 
  Country: JP (occurrence: JP)
  Receive Date: 20120830
  Receipt Date: 20120929
  Transmission Date: 20130627
  Serious: Yes (Other)
  Sender: FDA-Public Use
  Company Number: JP-009507513-1208JPN010894

PATIENT
  Age: 67 Year
  Sex: Male

DRUGS (6)
  1. JANUVIA TABLETS 50MG [Suspect]
     Indication: DIABETES MELLITUS
     Dosage: 50 mg, qd
     Route: 048
     Dates: start: 20120626, end: 20120810
  2. LANTUS [Concomitant]
     Dosage: 6 (under 1000 unit), qd
     Route: 065
  3. NELBIS [Concomitant]
     Dosage: 250 mg, tid
     Route: 048
  4. MICARDIS [Concomitant]
     Dosage: 40 mg, bid
     Route: 048
  5. TANATRIL [Concomitant]
     Dosage: 5 mg, qd
     Route: 048
  6. CONIEL [Concomitant]
     Dosage: 4 mg, bid
     Route: 048

REACTIONS (1)
  - Pancytopenia [Recovered/Resolved]
